FAERS Safety Report 4682516-6 (Version None)
Quarter: 2005Q2

REPORT INFORMATION
  Report Type: 
  Country: None (occurrence: None)
  Receive Date: 20050602
  Receipt Date: 20050602
  Transmission Date: 20051028
  Serious: Yes (Hospitalization)
  Sender: FDA-Public Use
  Company Number: None

PATIENT
  Age: 21 Year
  Sex: Female
  Weight: 78 kg

DRUGS (1)
  1. VENLAFAXINE 75MG ONE DAILY [Suspect]
     Indication: DEPRESSION
     Dosage: PO 75MG DAILY
     Route: 048
     Dates: start: 20050105, end: 20050304

REACTIONS (1)
  - BRAIN NATRIURETIC PEPTIDE INCREASED [None]
